FAERS Safety Report 5764574-0 (Version None)
Quarter: 2008Q2

REPORT INFORMATION
  Report Type: 
  Country: None (occurrence: None)
  Receive Date: 20080610
  Receipt Date: 20080529
  Transmission Date: 20081010
  Serious: Yes (Death, Other)
  Sender: FDA-Public Use
  Company Number: US-PFIZER INC-2008046956

PATIENT
  Age: 90 Year
  Sex: Female

DRUGS (3)
  1. LYRICA [Suspect]
     Indication: BURNING SENSATION
     Dates: start: 20080512, end: 20080501
  2. LYRICA [Suspect]
     Indication: PAIN IN EXTREMITY
  3. ALL OTHER THERAPEUTIC PRODUCTS [Concomitant]

REACTIONS (3)
  - BLOOD PRESSURE DECREASED [None]
  - DEATH [None]
  - FALL [None]
